FAERS Safety Report 13579964 (Version 1)
Quarter: 2017Q2

REPORT INFORMATION
  Report Type: Spontaneous
  Country: US (occurrence: US)
  Receive Date: 20170525
  Receipt Date: 20170525
  Transmission Date: 20170830
  Serious: Yes (Other)
  Sender: FDA-Public Use
  Company Number: US-VALIDUS PHARMACEUTICALS LLC-US-2017VAL000778

PATIENT

DRUGS (3)
  1. LOPRESSOR [Suspect]
     Active Substance: METOPROLOL TARTRATE
     Indication: CARDIOMYOPATHY
  2. LOPRESSOR [Suspect]
     Active Substance: METOPROLOL TARTRATE
     Indication: CARDIAC FAILURE CONGESTIVE
     Dosage: 25 MG, QD
     Route: 048
     Dates: start: 20110628, end: 20170123
  3. ENTRESTO [Suspect]
     Active Substance: SACUBITRIL\VALSARTAN
     Indication: CARDIAC FAILURE CONGESTIVE
     Dosage: 24/26 MG, QD
     Route: 048
     Dates: start: 20160629, end: 20170127

REACTIONS (1)
  - Hypotension [Recovered/Resolved]

NARRATIVE: CASE EVENT DATE: 20170123
